FAERS Safety Report 15977096 (Version 1)
Quarter: 2019Q1

REPORT INFORMATION
  Report Type: Spontaneous
  Country: US (occurrence: US)
  Receive Date: 20190218
  Receipt Date: 20190218
  Transmission Date: 20190418
  Serious: No
  Sender: FDA-Public Use
  Company Number: US-BAYER-2019-034017

PATIENT
  Age: 24 Year
  Sex: Female
  Weight: 57.61 kg

DRUGS (2)
  1. IBUPROFEN. [Concomitant]
     Active Substance: IBUPROFEN
  2. ALEVE [Suspect]
     Active Substance: NAPROXEN SODIUM
     Indication: LIGAMENT RUPTURE
     Dosage: 220 MG; TWO TABLETS BY MOUTH, ONCE OR TWICE A DAY
     Route: 048

REACTIONS (2)
  - Expired product administered [None]
  - Urticaria [Not Recovered/Not Resolved]

NARRATIVE: CASE EVENT DATE: 20180624
